FAERS Safety Report 18454961 (Version 1)
Quarter: 2020Q4

REPORT INFORMATION
  Report Type: Spontaneous
  Country: NL (occurrence: NL)
  Receive Date: 20201103
  Receipt Date: 20201103
  Transmission Date: 20210114
  Serious: Yes (Death, Other)
  Sender: FDA-Public Use
  Company Number: NL-LA JOLLA PHARMACEUTICAL COMPANY-0000371

PATIENT
  Age: 34 Year
  Sex: Male

DRUGS (1)
  1. GIAPREZA [Suspect]
     Active Substance: ANGIOTENSIN II
     Indication: SEPTIC SHOCK
     Dosage: UNK

REACTIONS (4)
  - Cardiac arrest [Fatal]
  - Embolism arterial [Unknown]
  - Necrosis [Unknown]
  - Embolism venous [Unknown]
